FAERS Safety Report 21172225 (Version 1)
Quarter: 2022Q3

REPORT INFORMATION
  Report Type: Report from Study
  Country: RO (occurrence: RO)
  Receive Date: 20220804
  Receipt Date: 20220804
  Transmission Date: 20221026
  Serious: Yes (Other)
  Sender: FDA-Public Use
  Company Number: RO-NOVARTISPH-NVSC2022RO166846

PATIENT
  Age: 67 Year
  Sex: Female

DRUGS (2)
  1. PIQRAY [Suspect]
     Active Substance: ALPELISIB
     Indication: Breast cancer
     Dosage: 50 MG PLUS 200 MG
     Route: 065
     Dates: start: 20210812, end: 20220720
  2. DENOSUMAB [Concomitant]
     Active Substance: DENOSUMAB
     Indication: Ill-defined disorder
     Dosage: 1 DOSAGE FORM, Q4W (1 EVERY 28 DAYS)
     Route: 065

REACTIONS (4)
  - Metastases to liver [Unknown]
  - Metastasis [Not Recovered/Not Resolved]
  - Diabetes mellitus [Not Recovered/Not Resolved]
  - Weight decreased [Unknown]

NARRATIVE: CASE EVENT DATE: 20220701
